FAERS Safety Report 24837915 (Version 3)
Quarter: 2025Q1

REPORT INFORMATION
  Report Type: Spontaneous
  Country: US (occurrence: US)
  Receive Date: 20250113
  Receipt Date: 20250218
  Transmission Date: 20250409
  Serious: No
  Sender: INCYTE
  Company Number: US-EVENT-001042

PATIENT

DRUGS (2)
  1. OPZELURA [Suspect]
     Active Substance: RUXOLITINIB PHOSPHATE
     Indication: Vitiligo
     Dosage: UNK, BID
     Route: 065
     Dates: start: 202410
  2. OPZELURA [Suspect]
     Active Substance: RUXOLITINIB PHOSPHATE
     Route: 065
     Dates: start: 202410

REACTIONS (4)
  - Therapeutic product effect incomplete [Unknown]
  - Therapeutic product effect delayed [Unknown]
  - Onychomycosis [Unknown]
  - Off label use [Unknown]
